FAERS Safety Report 9807023 (Version 2)
Quarter: 2014Q1

REPORT INFORMATION
  Report Type: Spontaneous
  Country: US (occurrence: US)
  Receive Date: 20140110
  Receipt Date: 20140325
  Transmission Date: 20141002
  Serious: Yes (Other)
  Sender: FDA-Public Use
  Company Number: US-AMGEN-USASP2013091830

PATIENT
  Age: 64 Year
  Sex: Female

DRUGS (11)
  1. PROLIA [Suspect]
     Indication: OSTEOPOROSIS
     Dosage: UNK UNK, Q6MO
     Route: 065
  2. VIIBRYD [Suspect]
     Indication: DEPRESSION
     Dosage: 10 MG, UNK
     Route: 048
     Dates: start: 20110810
  3. VIIBRYD [Suspect]
     Indication: ANXIETY
  4. VIIBRYD [Suspect]
     Indication: POST-TRAUMATIC STRESS DISORDER
  5. KLONOPIN [Suspect]
     Indication: INSOMNIA
     Dosage: 0.5 MG, QD
     Route: 065
  6. NAPROSYN                           /00256201/ [Concomitant]
     Dosage: UNK
     Route: 065
  7. SKELAXIN                           /00611501/ [Concomitant]
     Dosage: UNK
     Route: 065
  8. TAPAZOLE [Concomitant]
     Indication: HYPERTHYROIDISM
     Dosage: UNK
     Route: 065
  9. TRAZODONE [Concomitant]
     Indication: DEPRESSION
     Dosage: 50 MG, QD
     Route: 065
  10. TRAZODONE [Concomitant]
     Indication: ANXIETY
  11. LEXAPRO [Concomitant]
     Indication: DEPRESSION
     Dosage: 20 MG, QD
     Route: 065

REACTIONS (8)
  - Immune system disorder [Recovering/Resolving]
  - Sinusitis [Recovered/Resolved]
  - Influenza [Recovered/Resolved]
  - Lethargy [Recovering/Resolving]
  - Inflammation [Recovering/Resolving]
  - Pruritus [Recovering/Resolving]
  - Herpes zoster [Recovered/Resolved]
  - Rash [Recovering/Resolving]
